FAERS Safety Report 6547200-2 (Version None)
Quarter: 2010Q1

REPORT INFORMATION
  Report Type: 
  Country: None (occurrence: None)
  Receive Date: 20100122
  Receipt Date: 20100119
  Transmission Date: 20100710
  Serious: No
  Sender: FDA-Public Use
  Company Number: US-ELI_LILLY_AND_COMPANY-US200912004667

PATIENT
  Sex: Male

DRUGS (4)
  1. HUMALOG [Suspect]
     Indication: DIABETES MELLITUS
     Dosage: 25 U, OTHER
     Dates: start: 20080101
  2. HUMALOG [Suspect]
     Dosage: 30 U, EACH EVENING
  3. HUMALOG [Suspect]
     Dosage: 25 U, OTHER
  4. HUMALOG [Suspect]
     Dosage: 30 U, EACH EVENING

REACTIONS (1)
  - DEVICE MISUSE [None]
